FAERS Safety Report 9940633 (Version 1)
Quarter: 2014Q1

REPORT INFORMATION
  Report Type: Spontaneous
  Country: US (occurrence: US)
  Receive Date: 20140303
  Receipt Date: 20140303
  Transmission Date: 20141002
  Serious: Yes (Other)
  Sender: FDA-Public Use
  Company Number: US-BAYER-2014-030467

PATIENT
  Age: 65 Year
  Sex: Male

DRUGS (3)
  1. VARDENAFIL HYDROCHLORIDE (ORAL) [Suspect]
     Indication: ERECTILE DYSFUNCTION
     Dosage: 20 MG, PRN HS
  2. TADALAFIL [Suspect]
     Indication: ERECTILE DYSFUNCTION
     Dosage: 5 MG, QD EVERY MORNING
  3. VERAPAMIL [Concomitant]
     Indication: HYPERTROPHIC CARDIOMYOPATHY

REACTIONS (1)
  - Presyncope [None]
